FAERS Safety Report 4300497-1 (Version None)
Quarter: 2004Q1

REPORT INFORMATION
  Report Type: 
  Country: None (occurrence: None)
  Receive Date: 20040217
  Receipt Date: 20040203
  Transmission Date: 20041129
  Serious: Yes (Hospitalization)
  Sender: FDA-Public Use
  Company Number: 167-20785-04020170

PATIENT
  Sex: Female

DRUGS (4)
  1. THALIDOMIDE (THALIDOMIDE) (100 MILLIGRAM, CAPSULES) [Suspect]
     Indication: NON-SMALL CELL LUNG CANCER
     Dosage: 100 MG, QD, ORAL
     Route: 048
     Dates: start: 20031029, end: 20040129
  2. THALIDOMIDE (THALIDOMIDE) (100 MILLIGRAM, CAPSULES) [Suspect]
     Indication: NON-SMALL CELL LUNG CANCER
     Dosage: 100 MG, QD, ORAL
     Route: 048
     Dates: start: 20040130
  3. CARBOPLATIN [Suspect]
     Indication: NON-SMALL CELL LUNG CANCER
     Dosage: INTRAVENOUS
     Route: 042
     Dates: start: 20040107
  4. ETOPOSIDE [Suspect]
     Indication: NON-SMALL CELL LUNG CANCER
     Dosage: INTRAVENOUS
     Route: 042
     Dates: start: 20040107

REACTIONS (16)
  - CHEST DISCOMFORT [None]
  - CHILLS [None]
  - DIZZINESS [None]
  - DYSPNOEA [None]
  - FATIGUE [None]
  - FLUSHING [None]
  - HAEMOGLOBIN DECREASED [None]
  - LOWER RESPIRATORY TRACT INFECTION [None]
  - NEUTROPHIL COUNT DECREASED [None]
  - ORTHOSTATIC HYPOTENSION [None]
  - PLATELET COUNT DECREASED [None]
  - PYREXIA [None]
  - TRANSFUSION REACTION [None]
  - TREMOR [None]
  - WHEEZING [None]
  - WHITE BLOOD CELL COUNT DECREASED [None]
